FAERS Safety Report 8561088-X (Version None)
Quarter: 2012Q3

REPORT INFORMATION
  Report Type: 
  Country: None (occurrence: None)
  Receive Date: 20120723
  Receipt Date: 20120711
  Transmission Date: 20120928
  Serious: Yes (Hospitalization)
  Sender: FDA-Public Use
  Company Number: ACO_31073_2012

PATIENT
  Age: 42 Year
  Sex: Female
  Weight: 72.6 kg

DRUGS (4)
  1. REBIF [Concomitant]
  2. TIZANIDINE HYDROCHLORIDE [Concomitant]
  3. AMPYRA [Suspect]
     Indication: PRODUCT USED FOR UNKNOWN INDICATION
     Dosage: 10MG, BID, ORAL
     Route: 048
     Dates: start: 20120601, end: 20120101
  4. ORAL CONTRACEPTIVE NOS (ORAL CONTRACEPTIVE NOS) [Concomitant]

REACTIONS (3)
  - JAUNDICE [None]
  - WHITE BLOOD CELL COUNT INCREASED [None]
  - NEUTROPHIL COUNT INCREASED [None]
